FAERS Safety Report 15885168 (Version 5)
Quarter: 2019Q3

REPORT INFORMATION
  Report Type: Spontaneous
  Country: US (occurrence: US)
  Receive Date: 20190129
  Receipt Date: 20190828
  Transmission Date: 20191004
  Serious: No
  Sender: FDA-Public Use
  Company Number: US-LEXICON PHARMACEUTICALS, INC-19-1606-00042

PATIENT
  Sex: Female

DRUGS (14)
  1. TELOTRISTAT ETHYL [Suspect]
     Active Substance: TELOTRISTAT ETHYL
     Indication: CARCINOID TUMOUR
     Route: 048
     Dates: start: 20190120
  2. ZOSTAVAX [Concomitant]
     Active Substance: VARICELLA-ZOSTER VIRUS STRAIN OKA/MERCK LIVE ANTIGEN
  3. FELODIPIPNE ER [Concomitant]
  4. ADVAIR DISKUS [Concomitant]
     Active Substance: FLUTICASONE PROPIONATE\SALMETEROL XINAFOATE
  5. TELOTRISTAT ETHYL [Suspect]
     Active Substance: TELOTRISTAT ETHYL
     Route: 048
     Dates: start: 20190410
  6. LOMOTIL [Concomitant]
     Active Substance: ATROPINE SULFATE\DIPHENOXYLATE HYDROCHLORIDE
  7. MELOXICAM. [Concomitant]
     Active Substance: MELOXICAM
  8. LASIX [Concomitant]
     Active Substance: FUROSEMIDE
  9. LEVALBUTEROL. [Concomitant]
     Active Substance: LEVALBUTEROL
  10. PATANOL [Concomitant]
     Active Substance: OLOPATADINE HYDROCHLORIDE
  11. TELOTRISTAT ETHYL [Suspect]
     Active Substance: TELOTRISTAT ETHYL
     Indication: CARCINOID SYNDROME
     Route: 048
     Dates: start: 20181211, end: 20181218
  12. BOOSTRIX [Concomitant]
     Active Substance: TETANUS TOXOID, REDUCED DIPHTHERIA TOXOID AND ACELLULAR PERTUSSIS VACCINE, ADSORBED ANTIGENS
  13. NEXIUM [Concomitant]
     Active Substance: ESOMEPRAZOLE MAGNESIUM
  14. RESTASIS [Concomitant]
     Active Substance: CYCLOSPORINE

REACTIONS (5)
  - Seasonal allergy [Not Recovered/Not Resolved]
  - Oropharyngeal pain [Unknown]
  - Off label use [Unknown]
  - Abdominal pain [Recovered/Resolved]
  - Oral surgery [Not Recovered/Not Resolved]
